FAERS Safety Report 18994237 (Version 1)
Quarter: 2021Q1

REPORT INFORMATION
  Report Type: Spontaneous
  Country: DE (occurrence: DE)
  Receive Date: 20210310
  Receipt Date: 20210310
  Transmission Date: 20210420
  Serious: Yes (Death, Other)
  Sender: FDA-Public Use
  Company Number: DE-BAUSCH-BL-2021-007139

PATIENT
  Age: 77 Year
  Sex: Male

DRUGS (10)
  1. REVLIMID [Suspect]
     Active Substance: LENALIDOMIDE
     Route: 065
     Dates: end: 201609
  2. REVLIMID [Suspect]
     Active Substance: LENALIDOMIDE
     Route: 065
     Dates: start: 201304
  3. REVLIMID [Suspect]
     Active Substance: LENALIDOMIDE
     Indication: PRODUCT USED FOR UNKNOWN INDICATION
     Route: 065
     Dates: start: 201711, end: 201802
  4. REVLIMID [Suspect]
     Active Substance: LENALIDOMIDE
     Route: 065
     Dates: start: 201210
  5. BENDAMUSTINE [Suspect]
     Active Substance: BENDAMUSTINE
     Indication: PRODUCT USED FOR UNKNOWN INDICATION
     Route: 065
     Dates: start: 202003
  6. PREDNISOLONE. [Suspect]
     Active Substance: PREDNISOLONE
     Indication: PRODUCT USED FOR UNKNOWN INDICATION
     Route: 065
     Dates: start: 202003
  7. REVLIMID [Suspect]
     Active Substance: LENALIDOMIDE
     Route: 065
     Dates: start: 201911, end: 202002
  8. BLENREP [Suspect]
     Active Substance: BELANTAMAB MAFODOTIN-BLMF
     Indication: PRODUCT USED FOR UNKNOWN INDICATION
     Route: 065
  9. BLENREP [Suspect]
     Active Substance: BELANTAMAB MAFODOTIN-BLMF
     Route: 065
     Dates: start: 202005, end: 202011
  10. IXAZOMIB [Suspect]
     Active Substance: IXAZOMIB
     Indication: PRODUCT USED FOR UNKNOWN INDICATION
     Route: 065
     Dates: start: 201911, end: 202002

REACTIONS (8)
  - Fatigue [Unknown]
  - Pancytopenia [Fatal]
  - Immunoglobulins decreased [Fatal]
  - Neutropenic sepsis [Fatal]
  - Blood lactate dehydrogenase increased [Unknown]
  - Haemolytic anaemia [Unknown]
  - Keratopathy [Recovering/Resolving]
  - Blood immunoglobulin A abnormal [Unknown]
